FAERS Safety Report 5826751-X (Version None)
Quarter: 2008Q3

REPORT INFORMATION
  Report Type: 
  Country: None (occurrence: None)
  Receive Date: 20080728
  Receipt Date: 20080728
  Transmission Date: 20090109
  Serious: No
  Sender: FDA-Public Use
  Company Number: None

PATIENT
  Age: 65 Year
  Sex: Female
  Weight: 70.3075 kg

DRUGS (4)
  1. LYRICA [Suspect]
     Indication: FIBROMYALGIA
     Dosage: 50 MG 3 TIMES DAILY PO
     Route: 048
     Dates: start: 20071129, end: 20080509
  2. LYRICA [Suspect]
     Indication: NEUROPATHY PERIPHERAL
     Dosage: 50 MG 3 TIMES DAILY PO
     Route: 048
     Dates: start: 20071129, end: 20080509
  3. LYRICA [Suspect]
     Indication: FIBROMYALGIA
     Dosage: 50 MG 3 TIMES DAILY PO
     Route: 048
     Dates: start: 20071129, end: 20080509
  4. LYRICA [Suspect]
     Indication: NEUROPATHY PERIPHERAL
     Dosage: 50 MG 3 TIMES DAILY PO
     Route: 048
     Dates: start: 20071129, end: 20080509

REACTIONS (7)
  - BALANCE DISORDER [None]
  - DRUG INEFFECTIVE [None]
  - FALL [None]
  - FEELING ABNORMAL [None]
  - IMPAIRED DRIVING ABILITY [None]
  - SOMNOLENCE [None]
  - WEIGHT INCREASED [None]
